FAERS Safety Report 13022358 (Version 1)
Quarter: 2016Q4

REPORT INFORMATION
  Report Type: Spontaneous
  Country: US (occurrence: US)
  Receive Date: 20161213
  Receipt Date: 20161213
  Transmission Date: 20170207
  Serious: No
  Sender: FDA-Public Use
  Company Number: US-PFIZER INC-2016573280

PATIENT
  Sex: Female

DRUGS (1)
  1. XELJANZ [Suspect]
     Active Substance: TOFACITINIB CITRATE
     Indication: RHEUMATOID ARTHRITIS
     Dosage: 5 MG, 2X/DAY
     Dates: start: 20161101

REACTIONS (8)
  - Fatigue [Unknown]
  - Insomnia [Unknown]
  - Neck pain [Unknown]
  - Synovial cyst [Unknown]
  - Paraesthesia oral [Recovered/Resolved]
  - Pain in extremity [Unknown]
  - Trigger finger [Recovered/Resolved]
  - Anxiety [Unknown]
